FAERS Safety Report 9135567 (Version 1)
Quarter: 2013Q1

REPORT INFORMATION
  Report Type: Spontaneous
  Country: US (occurrence: US)
  Receive Date: 20130219
  Receipt Date: 20130219
  Transmission Date: 20140127
  Serious: No
  Sender: FDA-Public Use
  Company Number: US-BRISTOL-MYERS SQUIBB COMPANY-16770539

PATIENT
  Age: 52 Year
  Sex: Female

DRUGS (8)
  1. ABATACEPT SUBQ INJECTION 125MG/ML [Suspect]
     Indication: RHEUMATOID ARTHRITIS
     Dosage: LAST DOSE:19OCT12
     Route: 058
     Dates: start: 20120614
  2. PREDNISONE [Concomitant]
  3. METHOTREXATE [Concomitant]
  4. FOLIC ACID [Concomitant]
  5. NAPROXEN [Concomitant]
  6. LASIX [Concomitant]
  7. RANITIDINE [Concomitant]
  8. POTASSIUM [Concomitant]

REACTIONS (2)
  - Contusion [Recovered/Resolved]
  - Drug dose omission [Unknown]
